FAERS Safety Report 15144826 (Version 9)
Quarter: 2020Q1

REPORT INFORMATION
  Report Type: Spontaneous
  Country: US (occurrence: US)
  Receive Date: 20180713
  Receipt Date: 20200108
  Transmission Date: 20200409
  Serious: No
  Sender: FDA-Public Use
  Company Number: US-STRONGBRIDGE BIOPHARMA-2018-STR-000212

PATIENT
  Age: 64 Year
  Sex: Female

DRUGS (11)
  1. KEVEYIS [Suspect]
     Active Substance: DICHLORPHENAMIDE
     Indication: FAMILIAL PERIODIC PARALYSIS
     Dosage: UNK
     Route: 048
     Dates: start: 20180219, end: 201806
  2. VITAMIN D                          /00107901/ [Concomitant]
     Active Substance: ERGOCALCIFEROL
  3. ZINC. [Concomitant]
     Active Substance: ZINC
  4. KEVEYIS [Suspect]
     Active Substance: DICHLORPHENAMIDE
     Dosage: 100 MG, BID
     Route: 048
     Dates: start: 201806
  5. LEVOTHYROXINE. [Concomitant]
     Active Substance: LEVOTHYROXINE
  6. CYMBALTA [Concomitant]
     Active Substance: DULOXETINE HYDROCHLORIDE
  7. KEVEYIS [Suspect]
     Active Substance: DICHLORPHENAMIDE
     Dosage: 100 MG, BID
     Route: 048
  8. AMITRIPTYLINE [Concomitant]
     Active Substance: AMITRIPTYLINE
     Indication: HEADACHE
     Dosage: UNK
  9. NAPROXEN. [Concomitant]
     Active Substance: NAPROXEN
  10. LYRICA [Concomitant]
     Active Substance: PREGABALIN
  11. LISINOPRIL. [Concomitant]
     Active Substance: LISINOPRIL

REACTIONS (16)
  - Musculoskeletal pain [Not Recovered/Not Resolved]
  - Myalgia [Unknown]
  - Headache [Recovering/Resolving]
  - Musculoskeletal pain [Not Recovered/Not Resolved]
  - Insomnia [Not Recovered/Not Resolved]
  - Musculoskeletal pain [Not Recovered/Not Resolved]
  - Taste disorder [Recovering/Resolving]
  - Myalgia [Not Recovered/Not Resolved]
  - Asthenia [Unknown]
  - Headache [Recovering/Resolving]
  - Tongue disorder [Recovering/Resolving]
  - Pain [Unknown]
  - Lethargy [Recovering/Resolving]
  - Neck pain [Not Recovered/Not Resolved]
  - Decreased activity [Recovering/Resolving]
  - Dry mouth [Recovering/Resolving]

NARRATIVE: CASE EVENT DATE: 20180502
